FAERS Safety Report 4560300-1 (Version None)
Quarter: 2005Q1

REPORT INFORMATION
  Report Type: 
  Country: None (occurrence: None)
  Receive Date: 20050120
  Receipt Date: 20050120
  Transmission Date: 20050727
  Serious: No
  Sender: FDA-Public Use
  Company Number: None

PATIENT
  Sex: Female
  Weight: 84.369 kg

DRUGS (1)
  1. CYCLOBENZAPRINE HCL [Suspect]
     Indication: FIBROMYALGIA
     Dosage: 10 MG TID PO
     Route: 048

REACTIONS (2)
  - DIZZINESS [None]
  - STOMACH DISCOMFORT [None]
